FAERS Safety Report 4743928-5 (Version None)
Quarter: 2005Q3

REPORT INFORMATION
  Report Type: 
  Country: None (occurrence: None)
  Receive Date: 20050809
  Receipt Date: 20050729
  Transmission Date: 20060218
  Serious: Yes (Other)
  Sender: FDA-Public Use
  Company Number: 2005109075

PATIENT
  Age: 63 Year
  Sex: Female

DRUGS (8)
  1. AROMASIN [Suspect]
     Indication: ILL-DEFINED DISORDER
     Dosage: 25 MG (25 MG), ORAL
     Route: 048
     Dates: start: 20050211
  2. PREDNISONE [Concomitant]
  3. LORAZEPAM [Concomitant]
  4. TRAZODONE HCL [Concomitant]
  5. RISEDRONATE SODIUM HYDRATE (RISEDRONATE SODIUM) [Concomitant]
  6. CALCIUM WITH VITAMIN D (CALCIUM PHOSPHATE, CALCIUM SODIUM LACTATE, ERG [Concomitant]
  7. PAROXETINE HCL [Concomitant]
  8. WARFARIN SODIUM [Concomitant]

REACTIONS (4)
  - BLINDNESS [None]
  - LACRIMATION INCREASED [None]
  - RHINITIS [None]
  - VISION BLURRED [None]
